FAERS Safety Report 9095547 (Version 1)
Quarter: 2013Q1

REPORT INFORMATION
  Report Type: Spontaneous
  Country: BR (occurrence: BR)
  Receive Date: 20130220
  Receipt Date: 20130220
  Transmission Date: 20140127
  Serious: Yes (Life-Threatening, Hospitalization, Other)
  Sender: FDA-Public Use
  Company Number: PHHY2013BR015912

PATIENT
  Sex: Male

DRUGS (4)
  1. TRILEPTAL [Suspect]
     Indication: CONVULSION
     Dosage: 0.5 DF, DAILY
  2. TRILEPTAL [Suspect]
     Indication: CONVULSION
     Dosage: 5.5 ML, BID
     Route: 048
  3. CLONAZEPAM [Suspect]
     Indication: SEDATION
     Dosage: UNK
  4. VALPAKINE [Suspect]
     Indication: CONVULSION
     Dosage: UNK

REACTIONS (1)
  - Respiratory failure [Recovering/Resolving]
